FAERS Safety Report 7812699-8 (Version None)
Quarter: 2011Q4

REPORT INFORMATION
  Report Type: 
  Country: None (occurrence: None)
  Receive Date: 20111013
  Receipt Date: 20110929
  Transmission Date: 20120403
  Serious: Yes (Hospitalization, Other)
  Sender: FDA-Public Use
  Company Number: FR-ELI_LILLY_AND_COMPANY-FR201109008231

PATIENT
  Age: 41 Year
  Sex: Female

DRUGS (12)
  1. DEPAKOTE [Concomitant]
     Dosage: 500 MG, UNK
     Route: 048
     Dates: start: 20110622, end: 20110627
  2. DEPAKOTE [Concomitant]
     Dosage: 500 MG, UNK
     Route: 048
     Dates: start: 20110430, end: 20110606
  3. LITHIUM CARBONATE [Concomitant]
     Dosage: 250 MG, UNK
     Route: 048
     Dates: start: 20110606, end: 20110703
  4. ZYPREXA [Suspect]
     Dosage: 20 MG, UNK
     Route: 048
     Dates: start: 20110620, end: 20110704
  5. TRIHEXYPHENIDYL HYDROCHLORIDE [Concomitant]
     Dosage: 5 MG, UNK
     Dates: start: 20110615, end: 20110704
  6. HALDOL [Concomitant]
     Dosage: UNK
     Dates: start: 20110620, end: 20110630
  7. TERCIAN [Concomitant]
     Dosage: UNK
     Dates: start: 20110606, end: 20110630
  8. TERCIAN [Concomitant]
     Dosage: UNK
     Dates: start: 20110811
  9. ZYPREXA [Suspect]
     Dosage: 20 MG, UNK
     Route: 048
     Dates: start: 20110430, end: 20110606
  10. IMOVANE [Concomitant]
     Dosage: UNK
     Dates: start: 20110606
  11. RISPERDAL [Concomitant]
     Dosage: UNK
     Dates: start: 20110606, end: 20110620
  12. OXAZEPAM [Concomitant]
     Dosage: UNK
     Dates: start: 20110430, end: 20110606

REACTIONS (7)
  - CYTOLYTIC HEPATITIS [None]
  - DRUG RASH WITH EOSINOPHILIA AND SYSTEMIC SYMPTOMS [None]
  - ACUTE HEPATIC FAILURE [None]
  - DEPRESSIVE DELUSION [None]
  - MAJOR DEPRESSION [None]
  - CHOLESTASIS [None]
  - AGRANULOCYTOSIS [None]
